FAERS Safety Report 17147068 (Version 1)
Quarter: 2019Q4

REPORT INFORMATION
  Report Type: Spontaneous
  Country: US (occurrence: US)
  Receive Date: 20191212
  Receipt Date: 20191212
  Transmission Date: 20200122
  Serious: Yes (Other)
  Sender: FDA-Public Use
  Company Number: US-ELI_LILLY_AND_COMPANY-US201912002548

PATIENT
  Age: 96 Year
  Sex: Female

DRUGS (1)
  1. CYMBALTA [Suspect]
     Active Substance: DULOXETINE HYDROCHLORIDE
     Indication: NEUROPATHY PERIPHERAL
     Dosage: 20 MG, BID
     Route: 048
     Dates: start: 2017

REACTIONS (9)
  - Pain in extremity [Not Recovered/Not Resolved]
  - Contusion [Recovering/Resolving]
  - Fall [Recovering/Resolving]
  - Off label use [Unknown]
  - Cerebrovascular accident [Recovering/Resolving]
  - Thyroid hormones decreased [Recovered/Resolved]
  - Gait disturbance [Not Recovered/Not Resolved]
  - Drug ineffective [Not Recovered/Not Resolved]
  - Dementia [Not Recovered/Not Resolved]
